FAERS Safety Report 7349525-X (Version None)
Quarter: 2011Q1

REPORT INFORMATION
  Report Type: 
  Country: None (occurrence: None)
  Receive Date: 20110314
  Receipt Date: 20110103
  Transmission Date: 20110831
  Serious: No
  Sender: FDA-Public Use
  Company Number: US-ABBOTT-11P-163-0695120-00

PATIENT
  Sex: Female
  Weight: 72.64 kg

DRUGS (2)
  1. ABILIFY [Concomitant]
     Indication: PRODUCT USED FOR UNKNOWN INDICATION
     Dates: start: 20070101
  2. DEPAKOTE [Suspect]
     Indication: BIPOLAR DISORDER
     Dates: start: 19960101

REACTIONS (2)
  - WEIGHT INCREASED [None]
  - ALOPECIA [None]
